FAERS Safety Report 22089978 (Version 1)
Quarter: 2023Q1

REPORT INFORMATION
  Report Type: Other
  Country: None (occurrence: AU)
  Receive Date: 20230313
  Receipt Date: 20230313
  Transmission Date: 20230418
  Serious: Yes (Hospitalization)
  Sender: FDA-Public Use
  Company Number: AU-B.Braun Medical Inc.-2138994

PATIENT
  Sex: Male
  Weight: 3.74 kg

DRUGS (4)
  1. DEXTROSE [Suspect]
     Active Substance: DEXTROSE
     Indication: Hypoglycaemia
     Route: 042
  2. DIAZOXIDE [Suspect]
     Active Substance: DIAZOXIDE
  3. OCTREOTIDE [Suspect]
     Active Substance: OCTREOTIDE
  4. GLUCAGON [Suspect]
     Active Substance: GLUCAGON

REACTIONS (1)
  - Drug ineffective [Unknown]
